FAERS Safety Report 22335110 (Version 2)
Quarter: 2025Q1

REPORT INFORMATION
  Report Type: Spontaneous
  Country: US (occurrence: US)
  Receive Date: 20230518
  Receipt Date: 20250328
  Transmission Date: 20250409
  Serious: Yes (Other)
  Sender: ROCHE
  Company Number: US-ROCHE-3216902

PATIENT
  Age: 79 Year
  Sex: Female
  Weight: 76.2 kg

DRUGS (18)
  1. ACTEMRA [Suspect]
     Active Substance: TOCILIZUMAB
     Indication: Giant cell arteritis
     Dosage: INJECTION
     Route: 058
     Dates: start: 20220227
  2. ALBUTEROL SULFATE [Concomitant]
     Active Substance: ALBUTEROL SULFATE
  3. FOSAMAX [Concomitant]
     Active Substance: ALENDRONATE SODIUM
     Route: 048
  4. ASTELIN [Concomitant]
     Active Substance: AZELASTINE HYDROCHLORIDE
  5. BIFIDOBACTERIUM SPP. [Concomitant]
     Active Substance: BIFIDOBACTERIUM SPP.
  6. CALCIUM CARBONATE [Concomitant]
     Active Substance: CALCIUM CARBONATE
  7. CEQUA [Concomitant]
     Active Substance: CYCLOSPORINE
  8. FEXOFENADINE [Concomitant]
     Active Substance: FEXOFENADINE HYDROCHLORIDE
  9. FLOVENT HFA [Concomitant]
     Active Substance: FLUTICASONE PROPIONATE
  10. LEVOTHYROXINE [Concomitant]
     Active Substance: LEVOTHYROXINE
  11. MAGNESIUM CHLORIDE [Concomitant]
     Active Substance: MAGNESIUM CHLORIDE
  12. MIRABEGRON [Concomitant]
     Active Substance: MIRABEGRON
  13. SINGULAIR [Concomitant]
     Active Substance: MONTELUKAST SODIUM
  14. NYSTATIN [Concomitant]
     Active Substance: NYSTATIN
  15. FISH OIL [Concomitant]
     Active Substance: FISH OIL
  16. ROSUVASTATIN [Concomitant]
     Active Substance: ROSUVASTATIN
  17. SPIRONOLACTONE [Concomitant]
     Active Substance: SPIRONOLACTONE
  18. VERAPAMIL [Concomitant]
     Active Substance: VERAPAMIL HYDROCHLORIDE

REACTIONS (9)
  - Contusion [Not Recovered/Not Resolved]
  - Device defective [Unknown]
  - Product complaint [Unknown]
  - Headache [Unknown]
  - Diarrhoea [Unknown]
  - Pain [Unknown]
  - Claudication of jaw muscles [Unknown]
  - Purpura senile [Unknown]
  - Severe acute respiratory syndrome [Unknown]

NARRATIVE: CASE EVENT DATE: 20220227
